FAERS Safety Report 25166181 (Version 4)
Quarter: 2025Q3

REPORT INFORMATION
  Report Type: Spontaneous
  Country: US (occurrence: US)
  Receive Date: 20250407
  Receipt Date: 20250701
  Transmission Date: 20251020
  Serious: No
  Sender: SUNOVION
  Company Number: US-SMPA-2025SPA002940AA

PATIENT

DRUGS (2)
  1. ORGOVYX [Suspect]
     Active Substance: RELUGOLIX
     Indication: Prostate cancer
     Dosage: 360 MG, SINGLE
     Route: 048
     Dates: start: 20250308, end: 20250308
  2. ORGOVYX [Suspect]
     Active Substance: RELUGOLIX
     Dosage: 120 MG, QD
     Route: 048
     Dates: start: 20250309

REACTIONS (13)
  - Micturition urgency [Unknown]
  - Decreased appetite [Unknown]
  - Weight decreased [Unknown]
  - Incontinence [Unknown]
  - Nocturia [Unknown]
  - Eating disorder [Unknown]
  - Ageusia [Unknown]
  - Defaecation urgency [Unknown]
  - Abdominal pain [Unknown]
  - Somnolence [Unknown]
  - Diarrhoea [Unknown]
  - Asthenia [Unknown]
  - Fatigue [Unknown]
